FAERS Safety Report 9447696 (Version 1)
Quarter: 2013Q3

REPORT INFORMATION
  Report Type: Spontaneous
  Country: US (occurrence: US)
  Receive Date: 20130808
  Receipt Date: 20130808
  Transmission Date: 20140515
  Serious: Yes (Hospitalization)
  Sender: FDA-Public Use
  Company Number: US-SHIRE-ALL1-2013-05327

PATIENT
  Age: 23 Year
  Sex: Male

DRUGS (3)
  1. ADDERALL XR [Suspect]
     Indication: PRODUCT USED FOR UNKNOWN INDICATION
     Dosage: UNK, UNKNOWN
     Route: 048
     Dates: start: 2011, end: 2011
  2. ADDERALL XR [Suspect]
     Dosage: UNK, 1X/DAY:QD
     Route: 048
     Dates: start: 20130731, end: 20130804
  3. ESCITALOPRAM OXALATE [Concomitant]
     Indication: DEPRESSION
     Dosage: 10 MG, 1X/DAY:QD
     Route: 048

REACTIONS (7)
  - Psychomotor hyperactivity [Unknown]
  - Paranoia [Unknown]
  - Delusion [Unknown]
  - Aggression [Unknown]
  - Insomnia [Unknown]
  - Drug abuse [Recovered/Resolved]
  - Agitation [Recovered/Resolved]
